FAERS Safety Report 10203153 (Version 2)
Quarter: 2014Q2

REPORT INFORMATION
  Report Type: Spontaneous
  Country: US (occurrence: US)
  Receive Date: 20140529
  Receipt Date: 20140619
  Transmission Date: 20141212
  Serious: No
  Sender: FDA-Public Use
  Company Number: US-B.I. PHARMACEUTICALS,INC./RIDGEFIELD-2014-BI-22164BP

PATIENT
  Age: 77 Year
  Sex: Female
  Weight: 59 kg

DRUGS (4)
  1. SPIRIVA [Suspect]
     Indication: CHRONIC OBSTRUCTIVE PULMONARY DISEASE
     Dosage: 18 MCG
     Route: 055
     Dates: start: 201404
  2. METHOTREXATE [Concomitant]
     Indication: RHEUMATOID ARTHRITIS
     Route: 048
  3. GABAPENTIN [Concomitant]
     Indication: TREMOR
     Route: 048
  4. TWYNSTA [Concomitant]
     Indication: HYPERTENSION
     Dosage: 80/5MG
     Route: 048

REACTIONS (2)
  - Intraocular pressure increased [Not Recovered/Not Resolved]
  - Product quality issue [Not Recovered/Not Resolved]
